FAERS Safety Report 8081696-2 (Version None)
Quarter: 2012Q1

REPORT INFORMATION
  Report Type: 
  Country: None (occurrence: None)
  Receive Date: 20120130
  Receipt Date: 20120120
  Transmission Date: 20120608
  Serious: Yes (Other)
  Sender: FDA-Public Use
  Company Number: PHHY2012BR005593

PATIENT
  Sex: Female

DRUGS (1)
  1. TEGRETOL [Suspect]
     Indication: VENOUS OCCLUSION
     Dosage: 200MG ONCE A DAY
     Dates: start: 19820101

REACTIONS (6)
  - DEPRESSION [None]
  - HYPERTENSION [None]
  - CEREBROVASCULAR ACCIDENT [None]
  - ABDOMINAL DISCOMFORT [None]
  - ARTHRALGIA [None]
  - TRIGEMINAL NERVE DISORDER [None]
